FAERS Safety Report 13427577 (Version 1)
Quarter: 2017Q2

REPORT INFORMATION
  Report Type: Report from Study
  Country: CH (occurrence: CH)
  Receive Date: 20170411
  Receipt Date: 20170411
  Transmission Date: 20170830
  Serious: Yes (Death, Other)
  Sender: FDA-Public Use
  Company Number: CH-MYLANLABS-2017M1021820

PATIENT

DRUGS (3)
  1. IDARUBICIN [Suspect]
     Active Substance: IDARUBICIN
     Indication: ACUTE MYELOID LEUKAEMIA
     Dosage: 8 MG/M2; AS A 30MIN INFUSION ON DAYS 1-3
     Route: 050
  2. CYTARABINE. [Suspect]
     Active Substance: CYTARABINE
     Indication: ACUTE MYELOID LEUKAEMIA
     Dosage: 2000 MG/M2; AS A TWO HOUR INFUSION ON DAYS 1-5
     Route: 050
  3. CLADRIBINE. [Suspect]
     Active Substance: CLADRIBINE
     Indication: ACUTE MYELOID LEUKAEMIA
     Dosage: 5MG/M2; AS A THREE HOUR INFUSION ON DAYS 1-5
     Route: 050

REACTIONS (4)
  - Multiple organ dysfunction syndrome [Fatal]
  - Intestinal haemorrhage [Fatal]
  - Septic shock [Fatal]
  - Bacillus infection [Fatal]
